FAERS Safety Report 6960176-9 (Version None)
Quarter: 2010Q3

REPORT INFORMATION
  Report Type: 
  Country: None (occurrence: None)
  Receive Date: 20100901
  Receipt Date: 20100825
  Transmission Date: 20110219
  Serious: Yes (Hospitalization)
  Sender: FDA-Public Use
  Company Number: DE-SANOFI-AVENTIS-2010SA050431

PATIENT
  Age: 66 Year
  Sex: Female
  Weight: 72 kg

DRUGS (1)
  1. DOCETAXEL [Suspect]
     Route: 041
     Dates: start: 20060601, end: 20060601

REACTIONS (5)
  - DEPRESSION [None]
  - LEUKOPENIA [None]
  - NAUSEA [None]
  - STOMATITIS [None]
  - VOMITING [None]
